FAERS Safety Report 19990806 (Version 2)
Quarter: 2022Q1

REPORT INFORMATION
  Report Type: Spontaneous
  Country: FR (occurrence: FR)
  Receive Date: 20211025
  Receipt Date: 20220123
  Transmission Date: 20220424
  Serious: Yes (Hospitalization)
  Sender: FDA-Public Use
  Company Number: None

PATIENT
  Age: 24 Year
  Sex: Male
  Weight: 62 kg

DRUGS (5)
  1. RIVOTRIL [Suspect]
     Active Substance: CLONAZEPAM
     Indication: Product used for unknown indication
     Dosage: 10 MG PER DAY VS PRESCRIPTION OF 2 MG TWICE A DAY OR 4 MG
     Route: 048
     Dates: start: 2011
  2. COCAINE [Suspect]
     Active Substance: COCAINE
     Indication: Product used for unknown indication
     Route: 055
     Dates: start: 2018
  3. LYRICA [Suspect]
     Active Substance: PREGABALIN
     Indication: Product used for unknown indication
     Dosage: 1500 MG/DAY VS 300MG/DAY PRESCRIBED
     Route: 048
     Dates: start: 2016
  4. CANNABIS SATIVA SUBSP. INDICA TOP [Suspect]
     Active Substance: CANNABIS SATIVA SUBSP. INDICA TOP
     Indication: Product used for unknown indication
     Dosage: 4 TO 8 JOINTS/DAY?4 EUROS/DAY
     Route: 055
     Dates: start: 2011
  5. COCAINE [Concomitant]
     Active Substance: COCAINE
     Dosage: FROM 0.5 TO 1G/DAY 20 EUROS/DAY
     Route: 045
     Dates: start: 2018

REACTIONS (3)
  - Substance use disorder [Recovering/Resolving]
  - Drug detoxification [Recovering/Resolving]
  - Drug diversion [Recovering/Resolving]
